FAERS Safety Report 9330132 (Version 2)
Quarter: 2013Q4

REPORT INFORMATION
  Report Type: Spontaneous
  Country: US (occurrence: US)
  Receive Date: 20130604
  Receipt Date: 20131120
  Transmission Date: 20140711
  Serious: Yes (Hospitalization)
  Sender: FDA-Public Use
  Company Number: US-B.I. PHARMACEUTICALS,INC./RIDGEFIELD-2013-BI-15610BP

PATIENT
  Age: 72 Year
  Sex: Female
  Weight: 84.37 kg

DRUGS (12)
  1. PRADAXA [Suspect]
     Indication: ANTICOAGULANT THERAPY
     Dosage: 300 MG
     Dates: start: 20120323, end: 20130106
  2. PRADAXA [Suspect]
     Indication: ATRIAL FIBRILLATION
  3. GLUCOVANCE [Concomitant]
  4. CARDIZEM CD [Concomitant]
     Dosage: 120 MG
  5. NORVASC [Concomitant]
     Dosage: 10 MG
  6. CLONIDINE [Concomitant]
     Dosage: 0.6 MG
  7. INDOCIN [Concomitant]
     Indication: OSTEOARTHRITIS
     Dosage: 100 MG
     Dates: start: 20130102
  8. LOPID [Concomitant]
     Dosage: 600 MG
  9. LASIX [Concomitant]
     Dosage: 40 MG
  10. LISINOPRIL [Concomitant]
     Dosage: 20 MG
  11. VITAMIN D [Concomitant]
     Dosage: 1000 U
  12. KLONOPIN [Concomitant]
     Dosage: 3 MG

REACTIONS (3)
  - Gastrointestinal haemorrhage [Unknown]
  - Coagulopathy [Unknown]
  - Haemorrhagic anaemia [Unknown]
